FAERS Safety Report 8050700-X (Version None)
Quarter: 2012Q1

REPORT INFORMATION
  Report Type: 
  Country: None (occurrence: None)
  Receive Date: 20120117
  Receipt Date: 20120117
  Transmission Date: 20120608
  Serious: Yes (Life-Threatening, Hospitalization)
  Sender: FDA-Public Use
  Company Number: None

PATIENT
  Age: 57 Year
  Sex: Female
  Weight: 58.967 kg

DRUGS (1)
  1. ACTONEL [Suspect]
     Indication: OSTEOPOROSIS
     Dosage: 1 TABLET
     Route: 048
     Dates: start: 20091015, end: 20101110

REACTIONS (14)
  - INFLUENZA [None]
  - IMPAIRED WORK ABILITY [None]
  - ARTHRALGIA [None]
  - MUSCLE SWELLING [None]
  - PAIN IN EXTREMITY [None]
  - BONE MARROW TRANSPLANT [None]
  - MYELODYSPLASTIC SYNDROME [None]
  - ERYTHEMA [None]
  - MALAISE [None]
  - MYALGIA [None]
  - BACK PAIN [None]
  - ABASIA [None]
  - INADEQUATE ANALGESIA [None]
  - ACUTE MYELOID LEUKAEMIA [None]
